FAERS Safety Report 5209737-8 (Version None)
Quarter: 2006Q4

REPORT INFORMATION
  Report Type: 
  Country: None (occurrence: None)
  Receive Date: 20061128
  Receipt Date: 20051024
  Transmission Date: 20070319
  Serious: Yes (Other)
  Sender: FDA-Public Use
  Company Number: 2005145781

PATIENT
  Age: 62 Year
  Sex: Male

DRUGS (10)
  1. TIKOSYN [Suspect]
     Indication: ATRIAL FIBRILLATION
     Dosage: 750 MCG (250 MCG, 3 IN 1 D), ORAL
     Route: 048
     Dates: start: 20050101
  2. AVANDIA [Suspect]
     Indication: DIABETES MELLITUS
     Dosage: ORAL
     Route: 048
  3. FUROSEMIDE [Concomitant]
  4. POTASSIUM (POTASSIUM) [Concomitant]
  5. ZOCOR [Concomitant]
  6. ACCUPRIL [Concomitant]
  7. COREG [Concomitant]
  8. NIACIN [Concomitant]
  9. PRILOSEC [Concomitant]
  10. GLIPIZIDE [Concomitant]

REACTIONS (4)
  - DRUG INTERACTION [None]
  - DYSPNOEA [None]
  - FATIGUE [None]
  - FLUID RETENTION [None]
